FAERS Safety Report 6431577-2 (Version None)
Quarter: 2009Q4

REPORT INFORMATION
  Report Type: 
  Country: None (occurrence: None)
  Receive Date: 20091106
  Receipt Date: 20050822
  Transmission Date: 20100525
  Serious: No
  Sender: FDA-Public Use
  Company Number: US-GENENTECH-216460

PATIENT
  Sex: Female

DRUGS (2)
  1. AVASTIN [Suspect]
     Indication: NON-SMALL CELL LUNG CANCER
     Dosage: UNK, Q3W
     Route: 042
     Dates: start: 20050501
  2. ERLOTINIB [Suspect]
     Indication: NON-SMALL CELL LUNG CANCER
     Dosage: UNK
     Route: 065

REACTIONS (4)
  - DECREASED APPETITE [None]
  - DIARRHOEA [None]
  - PAIN [None]
  - WEIGHT DECREASED [None]
